FAERS Safety Report 7438137-5 (Version None)
Quarter: 2011Q2

REPORT INFORMATION
  Report Type: 
  Country: None (occurrence: None)
  Receive Date: 20110426
  Receipt Date: 20110418
  Transmission Date: 20111010
  Serious: Yes (Death)
  Sender: FDA-Public Use
  Company Number: Z0009025A

PATIENT
  Sex: Female
  Weight: 76 kg

DRUGS (5)
  1. SIMVASTATIN [Concomitant]
     Dosage: 20MG PER DAY
     Route: 048
  2. CHLORAMBUCIL [Suspect]
     Route: 048
     Dates: start: 20110405
  3. DOXEPIN [Concomitant]
     Indication: DEPRESSION
     Route: 048
  4. LEVOTHYROXINE SODIUM [Concomitant]
     Indication: HYPOTHYROIDISM
     Dosage: 125MCG PER DAY
     Route: 048
  5. OFATUMUMAB [Suspect]
     Route: 042
     Dates: start: 20110405

REACTIONS (4)
  - NAUSEA [None]
  - CARDIAC FAILURE [None]
  - VOMITING [None]
  - CHRONIC OBSTRUCTIVE PULMONARY DISEASE [None]
